FAERS Safety Report 7331109-0 (Version None)
Quarter: 2011Q1

REPORT INFORMATION
  Report Type: 
  Country: None (occurrence: None)
  Receive Date: 20110228
  Receipt Date: 20110228
  Transmission Date: 20110831
  Serious: Yes (Life-Threatening, Hospitalization, Other)
  Sender: FDA-Public Use
  Company Number: None

PATIENT
  Sex: Female
  Weight: 49.8957 kg

DRUGS (1)
  1. NAVANE [Suspect]
     Indication: HALLUCINATION, AUDITORY
     Dosage: 2 MG CAP 3 TIMES DAILY 2-3 YRS

REACTIONS (7)
  - MENTAL IMPAIRMENT [None]
  - DEHYDRATION [None]
  - THIRST [None]
  - THROAT TIGHTNESS [None]
  - CYANOSIS [None]
  - AMNESIA [None]
  - HEADACHE [None]
